FAERS Safety Report 19079976 (Version 4)
Quarter: 2021Q2

REPORT INFORMATION
  Report Type: Report from Study
  Country: US (occurrence: US)
  Receive Date: 20210331
  Receipt Date: 20210502
  Transmission Date: 20210717
  Serious: No
  Sender: FDA-Public Use
  Company Number: NVSC2021US067712

PATIENT
  Age: 46 Year
  Sex: Female

DRUGS (1)
  1. MAYZENT [Suspect]
     Active Substance: SIPONIMOD
     Indication: MULTIPLE SCLEROSIS
     Dosage: 2 MG, QD
     Route: 048
     Dates: start: 20210319, end: 20210323

REACTIONS (7)
  - Ill-defined disorder [Unknown]
  - Nausea [Recovered/Resolved]
  - Swelling [Recovered/Resolved]
  - Fatigue [Recovered/Resolved]
  - Face oedema [Recovered/Resolved]
  - Headache [Recovered/Resolved]
  - Tension [Recovered/Resolved]

NARRATIVE: CASE EVENT DATE: 20210322
